FAERS Safety Report 7268869-3 (Version None)
Quarter: 2011Q1

REPORT INFORMATION
  Report Type: 
  Country: None (occurrence: None)
  Receive Date: 20110201
  Receipt Date: 20110126
  Transmission Date: 20110831
  Serious: Yes (Other)
  Sender: FDA-Public Use
  Company Number: BR-PFIZER INC-2011018429

PATIENT
  Age: 80 Year
  Sex: Female

DRUGS (3)
  1. TICLID [Concomitant]
     Dosage: UNK
     Dates: start: 20080101
  2. XALATAN [Suspect]
     Indication: GLAUCOMA
     Dosage: 3 UG, 1X/DAY
     Route: 047
     Dates: start: 20080229, end: 20080801
  3. CRESTOR [Concomitant]
     Indication: BLOOD CHOLESTEROL
     Dosage: UNK
     Dates: start: 20060101

REACTIONS (4)
  - LACRIMATION INCREASED [None]
  - PRURITUS [None]
  - HYPERSENSITIVITY [None]
  - BURNING SENSATION [None]
